FAERS Safety Report 25864262 (Version 1)
Quarter: 2025Q3

REPORT INFORMATION
  Report Type: Spontaneous
  Country: US (occurrence: None)
  Receive Date: 20250929
  Receipt Date: 20250929
  Transmission Date: 20251021
  Serious: Yes (Hospitalization)
  Sender: FDA-CTU
  Company Number: None

PATIENT
  Age: 41 Year
  Sex: Male

DRUGS (2)
  1. KESIMPTA [Suspect]
     Active Substance: OFATUMUMAB
     Indication: Multiple sclerosis
     Dosage: 20MG MONTHLY
  2. COVID-19 VACCINE NOS [Suspect]
     Active Substance: COVID-19 VACCINE

REACTIONS (11)
  - Multiple sclerosis [None]
  - Mobility decreased [None]
  - Memory impairment [None]
  - Aphasia [None]
  - Brain fog [None]
  - Mental impairment [None]
  - Pain [None]
  - Bipolar disorder [None]
  - Anxiety [None]
  - Depression [None]
  - Fall [None]
